FAERS Safety Report 17296807 (Version 3)
Quarter: 2020Q1

REPORT INFORMATION
  Report Type: Report from Study
  Country: US (occurrence: US)
  Receive Date: 20200121
  Receipt Date: 20200219
  Transmission Date: 20200409
  Serious: Yes (Death, Hospitalization)
  Sender: FDA-Public Use
  Company Number: US-ACTELION-A-US2018-175139

PATIENT
  Age: 11 Year
  Sex: Female

DRUGS (7)
  1. UPTRAVI [Suspect]
     Active Substance: SELEXIPAG
     Dosage: 1000 MCG, BID
     Route: 048
  2. SILDENAFIL. [Suspect]
     Active Substance: SILDENAFIL
     Indication: PULMONARY HYPERTENSION
     Dosage: 20 MG, TID
     Route: 065
     Dates: start: 20170818
  3. UPTRAVI [Suspect]
     Active Substance: SELEXIPAG
     Dosage: 1600 MCG, BID
     Route: 048
     Dates: start: 20180428
  4. UPTRAVI [Suspect]
     Active Substance: SELEXIPAG
     Indication: PULMONARY ARTERIAL HYPERTENSION
     Dosage: 800 MCG, BID
     Route: 048
     Dates: start: 20170727, end: 20200106
  5. OXYGEN. [Suspect]
     Active Substance: OXYGEN
     Indication: PRODUCT USED FOR UNKNOWN INDICATION
     Route: 065
  6. TRACLEER [Suspect]
     Active Substance: BOSENTAN
     Indication: PULMONARY ARTERIAL HYPERTENSION
     Dosage: 62.5 MG, BID
     Route: 048
     Dates: start: 20170727, end: 20200106
  7. TORADOL [Concomitant]
     Active Substance: KETOROLAC TROMETHAMINE
     Indication: PAIN

REACTIONS (34)
  - Cardiac arrest [Fatal]
  - Back pain [Unknown]
  - Hypotension [Unknown]
  - Hypoxia [Unknown]
  - Acute respiratory failure [Unknown]
  - Nausea [Unknown]
  - Transfusion [Unknown]
  - Lactic acidosis [Unknown]
  - Skin discolouration [Unknown]
  - Pruritus [Unknown]
  - Coagulopathy [Unknown]
  - Reticulocyte count decreased [Unknown]
  - Haemoglobin decreased [Unknown]
  - Tachycardia [Unknown]
  - Blood pressure systolic increased [Unknown]
  - Dry skin [Unknown]
  - Malaise [Unknown]
  - Right ventricular failure [Fatal]
  - Sickle cell disease [Fatal]
  - Sickle cell anaemia with crisis [Unknown]
  - Central venous catheterisation [Unknown]
  - Acute chest syndrome [Unknown]
  - Blood bilirubin increased [Unknown]
  - Blood urine [Unknown]
  - Vomiting [Unknown]
  - Headache [Unknown]
  - Haemolysis [Unknown]
  - Haematocrit decreased [Unknown]
  - Electrocardiogram abnormal [Unknown]
  - Condition aggravated [Unknown]
  - Pulmonary hypertension [Fatal]
  - Hyperkalaemia [Fatal]
  - Renal failure [Fatal]
  - White blood cell count increased [Unknown]

NARRATIVE: CASE EVENT DATE: 201808
